FAERS Safety Report 9216029 (Version 3)
Quarter: 2013Q2

REPORT INFORMATION
  Report Type: Spontaneous
  Country: CL (occurrence: CL)
  Receive Date: 20130408
  Receipt Date: 20130503
  Transmission Date: 20140414
  Serious: Yes (Other)
  Sender: FDA-Public Use
  Company Number: CL-BAYER-2013-039271

PATIENT
  Age: 30 Year
  Sex: Female

DRUGS (7)
  1. YAZ [Suspect]
     Indication: PREMENSTRUAL SYNDROME
     Dosage: 1 DF, QD
     Route: 048
     Dates: start: 201301
  2. VITAMIN C [Concomitant]
  3. MINOCYCLINE [Concomitant]
     Dosage: 50 MG, QD
  4. MINOCYCLINE [Concomitant]
     Dosage: 50 MG, QD
  5. VANTIX [Concomitant]
  6. VANTIX [Concomitant]
  7. BAGOMICINA [Concomitant]

REACTIONS (6)
  - Syncope [Recovered/Resolved]
  - Syncope [Recovered/Resolved]
  - Breast discomfort [None]
  - Drug ineffective [Recovering/Resolving]
  - Viral infection [None]
  - Headache [None]
